FAERS Safety Report 25892920 (Version 3)
Quarter: 2025Q4

REPORT INFORMATION
  Report Type: Report from Study
  Country: EU (occurrence: EU)
  Receive Date: 20251007
  Receipt Date: 20251105
  Transmission Date: 20260118
  Serious: Yes (Death, Life-Threatening, Hospitalization, Other)
  Sender: JOHNSON AND JOHNSON
  Company Number: EU-JNJFOC-20250820362

PATIENT
  Age: 52 Year
  Sex: Female
  Weight: 75.0 kg

DRUGS (2)
  1. TECLISTAMAB [Suspect]
     Active Substance: TECLISTAMAB
     Indication: Plasma cell myeloma
     Route: 065
     Dates: start: 20230525
  2. TECLISTAMAB [Suspect]
     Active Substance: TECLISTAMAB
     Route: 065
     Dates: start: 20230529

REACTIONS (3)
  - Multiple organ dysfunction syndrome [Fatal]
  - Renal impairment [Not Recovered/Not Resolved]
  - Blood bilirubin increased [Not Recovered/Not Resolved]

NARRATIVE: CASE EVENT DATE: 20230525
